FAERS Safety Report 7548792-7 (Version None)
Quarter: 2011Q2

REPORT INFORMATION
  Report Type: 
  Country: None (occurrence: None)
  Receive Date: 20110615
  Receipt Date: 20110613
  Transmission Date: 20111010
  Serious: Yes (Other)
  Sender: FDA-Public Use
  Company Number: US-PFIZER INC-2011129631

PATIENT
  Sex: Female
  Weight: 58.503 kg

DRUGS (3)
  1. ALPRAZOLAM [Suspect]
     Dosage: 0.5 MG, 2X/DAY
     Route: 048
     Dates: start: 20070101
  2. METOPROLOL [Concomitant]
     Indication: HYPERTENSION
     Dosage: UNK
  3. THYROID TAB [Concomitant]
     Indication: HYPOTHYROIDISM
     Dosage: 60 MG, 1X/DAY

REACTIONS (5)
  - REACTION TO COLOURING [None]
  - VOMITING [None]
  - HYPOTHYROIDISM [None]
  - MALAISE [None]
  - PALPITATIONS [None]
